FAERS Safety Report 23559424 (Version 2)
Quarter: 2024Q1

REPORT INFORMATION
  Report Type: Other
  Country: US (occurrence: None)
  Receive Date: 20240223
  Receipt Date: 20240311
  Transmission Date: 20240409
  Serious: Yes (Hospitalization, Other)
  Sender: FDA-Public Use
  Company Number: US-ROCHE-3512482

PATIENT
  Age: 29 Year
  Sex: Female

DRUGS (30)
  1. OCREVUS [Suspect]
     Active Substance: OCRELIZUMAB
     Indication: Product used for unknown indication
     Route: 065
  2. RITUXAN [Suspect]
     Active Substance: RITUXIMAB
     Indication: Product used for unknown indication
     Route: 065
  3. CELLCEPT [Suspect]
     Active Substance: MYCOPHENOLATE MOFETIL
     Indication: Product used for unknown indication
     Route: 065
  4. TYLENOL [Concomitant]
     Active Substance: ACETAMINOPHEN
  5. ALBUTEROL SULFATE [Concomitant]
     Active Substance: ALBUTEROL SULFATE
  6. NORVASC [Concomitant]
     Active Substance: AMLODIPINE BESYLATE
  7. BREO ELLIPTA [Concomitant]
     Active Substance: FLUTICASONE FUROATE\VILANTEROL TRIFENATATE
  8. SYMBICORT [Concomitant]
     Active Substance: BUDESONIDE\FORMOTEROL FUMARATE DIHYDRATE
  9. WELLBUTRIN XL [Concomitant]
     Active Substance: BUPROPION HYDROCHLORIDE
  10. COREG [Concomitant]
     Active Substance: CARVEDILOL
  11. FLEXERIL [Concomitant]
     Active Substance: CYCLOBENZAPRINE HYDROCHLORIDE
  12. VOLTAREN [Concomitant]
     Active Substance: DICLOFENAC SODIUM
  13. ERGOCALCIFEROL [Concomitant]
     Active Substance: ERGOCALCIFEROL
  14. NEXIUM [Concomitant]
     Active Substance: ESOMEPRAZOLE MAGNESIUM
  15. LASIX [Concomitant]
     Active Substance: FUROSEMIDE
  16. PLAQUENIL [Concomitant]
     Active Substance: HYDROXYCHLOROQUINE SULFATE
  17. MIRENA [Concomitant]
     Active Substance: LEVONORGESTREL
  18. REGLAN [Concomitant]
     Active Substance: METOCLOPRAMIDE HYDROCHLORIDE
  19. BACTROBAN [Concomitant]
     Active Substance: MUPIROCIN CALCIUM
  20. OFEV [Concomitant]
     Active Substance: NINTEDANIB
  21. ZOFRAN [Concomitant]
     Active Substance: ONDANSETRON HYDROCHLORIDE
  22. ROXICODONE [Concomitant]
     Active Substance: OXYCODONE HYDROCHLORIDE
  23. PERCOCET [Concomitant]
     Active Substance: ACETAMINOPHEN\OXYCODONE HYDROCHLORIDE
  24. DELTASONE [Concomitant]
     Active Substance: PREDNISONE
  25. CRESTOR [Concomitant]
     Active Substance: ROSUVASTATIN CALCIUM
  26. ENTRESTO [Concomitant]
     Active Substance: SACUBITRIL\VALSARTAN
  27. OZEMPIC [Concomitant]
     Active Substance: SEMAGLUTIDE
  28. ZOLOFT [Concomitant]
     Active Substance: SERTRALINE HYDROCHLORIDE
  29. DESYREL [Concomitant]
     Active Substance: TRAZODONE HYDROCHLORIDE
  30. AMBIEN [Concomitant]
     Active Substance: ZOLPIDEM TARTRATE

REACTIONS (53)
  - Idiopathic pulmonary fibrosis [Unknown]
  - Idiopathic interstitial pneumonia [Unknown]
  - Systemic scleroderma [Unknown]
  - Dilated cardiomyopathy [Unknown]
  - Pulmonary hypertension [Unknown]
  - Thrombotic thrombocytopenic purpura [Unknown]
  - Subdural haematoma [Unknown]
  - Cerebrovascular accident [Unknown]
  - Acute kidney injury [Unknown]
  - Chronic kidney disease [Unknown]
  - Cerebral artery occlusion [Unknown]
  - Visual field defect [Recovered/Resolved]
  - Lupus encephalitis [Unknown]
  - Dyspnoea [Unknown]
  - Peripheral swelling [Unknown]
  - Cerebrovascular accident [Unknown]
  - Cerebral infarction [Unknown]
  - Cerebral artery stenosis [Unknown]
  - Interstitial lung disease [Unknown]
  - Scleroderma [Unknown]
  - Sjogren^s syndrome [Unknown]
  - Systemic lupus erythematosus [Unknown]
  - Osteoarthritis [Unknown]
  - Vitamin D deficiency [Unknown]
  - Trichomoniasis [Unknown]
  - Chest pain [Unknown]
  - Type 2 diabetes mellitus [Unknown]
  - Essential hypertension [Unknown]
  - Anaemia [Unknown]
  - Iron deficiency anaemia [Unknown]
  - Sleep disorder due to general medical condition, insomnia type [Unknown]
  - Myalgia [Unknown]
  - Neurological symptom [Unknown]
  - COVID-19 [Unknown]
  - Urinary tract infection [Unknown]
  - Arthralgia [Unknown]
  - Gangrene [Unknown]
  - Vasculitis [Unknown]
  - Central nervous system vasculitis [Unknown]
  - Lung diffusion test decreased [Unknown]
  - Pain [Unknown]
  - Thrombocytopenia [Unknown]
  - Raynaud^s phenomenon [Unknown]
  - Oesophageal motility disorder [Unknown]
  - Ejection fraction decreased [Unknown]
  - Depression [Unknown]
  - Skin hyperpigmentation [Unknown]
  - Fatigue [Unknown]
  - Drug ineffective [Unknown]
  - Nasopharyngitis [Unknown]
  - Dyspnoea exertional [Unknown]
  - Ill-defined disorder [Unknown]
  - Ulcer [Unknown]

NARRATIVE: CASE EVENT DATE: 20080101
